FAERS Safety Report 8971588 (Version 4)
Quarter: 2013Q1

REPORT INFORMATION
  Report Type: Report from Study
  Country: JP (occurrence: JP)
  Receive Date: 20121211
  Receipt Date: 20130226
  Transmission Date: 20140127
  Serious: Yes (Death, Life-Threatening, Hospitalization)
  Sender: FDA-Public Use
  Company Number: JP-PFIZER INC-2012306711

PATIENT
  Age: 74 Year
  Sex: Male
  Weight: 44.3 kg

DRUGS (9)
  1. XALKORI [Suspect]
     Indication: NON-SMALL CELL LUNG CANCER
     Dosage: 250 MG, 2X/DAY
     Route: 048
     Dates: start: 20120808, end: 20120813
  2. XALKORI [Suspect]
     Dosage: 200 MG, 2X/DAY
     Route: 048
     Dates: start: 20120814, end: 20121012
  3. RIFAMPICIN [Concomitant]
     Dosage: 450 MG, 1X/DAY
     Route: 048
     Dates: end: 20121012
  4. ETHAMBUTOL [Concomitant]
     Dosage: 750 MG, 1X/DAY
     Route: 048
     Dates: end: 20121012
  5. KLARICID [Concomitant]
     Dosage: 400 MG, 2X/DAY
     Route: 048
     Dates: end: 20121012
  6. DECADRON [Concomitant]
     Dosage: 1 MG, 1X/DAY
     Route: 048
     Dates: start: 20120707, end: 20121012
  7. NAUZELIN [Concomitant]
     Dosage: 10 MG, 3X/DAY
     Route: 048
     Dates: start: 20120811, end: 20121012
  8. GANATON [Concomitant]
     Dosage: 50 MG, 3X/DAY
     Route: 048
     Dates: start: 20120811, end: 20121012
  9. MAGNESIUM OXIDE [Concomitant]
     Dosage: 0.67 G, 3X/DAY
     Route: 048
     Dates: start: 20120811, end: 20121012

REACTIONS (3)
  - Gastrointestinal haemorrhage [Not Recovered/Not Resolved]
  - Disease progression [Fatal]
  - Non-small cell lung cancer [Fatal]
